FAERS Safety Report 4564017-9 (Version None)
Quarter: 2005Q1

REPORT INFORMATION
  Report Type: 
  Country: None (occurrence: None)
  Receive Date: 20050126
  Receipt Date: 20050110
  Transmission Date: 20050727
  Serious: Yes (Hospitalization)
  Sender: FDA-Public Use
  Company Number: EWC050142225

PATIENT
  Age: 44 Year
  Sex: Female

DRUGS (1)
  1. DULOXETINE HYDROCHLORIDE [Suspect]
     Indication: MAJOR DEPRESSION
     Dosage: 60MG/1 DAY
     Dates: start: 20041020, end: 20050104

REACTIONS (5)
  - LOSS OF CONSCIOUSNESS [None]
  - MIGRAINE [None]
  - SINUS TACHYCARDIA [None]
  - SOMNOLENCE [None]
  - SYNCOPE [None]
